FAERS Safety Report 20983164 (Version 2)
Quarter: 2023Q2

REPORT INFORMATION
  Report Type: Spontaneous
  Country: CA (occurrence: CA)
  Receive Date: 20220620
  Receipt Date: 20230525
  Transmission Date: 20230722
  Serious: Yes (Other)
  Sender: FDA-Public Use
  Company Number: CA-AMERICAN REGENT INC-2022001649

PATIENT
  Age: 28 Year
  Sex: Female
  Weight: 54 kg

DRUGS (1)
  1. VENOFER [Suspect]
     Active Substance: IRON SUCROSE
     Indication: Anaemia
     Dosage: 300 MILLIGRAM, ONCE DOSE ONLY
     Route: 042
     Dates: start: 20220215, end: 20220215

REACTIONS (3)
  - Skin burning sensation [Unknown]
  - Urticaria [Unknown]
  - Joint swelling [Unknown]
